FAERS Safety Report 5736808-X (Version None)
Quarter: 2008Q2

REPORT INFORMATION
  Report Type: 
  Country: None (occurrence: None)
  Receive Date: 20080509
  Receipt Date: 20080424
  Transmission Date: 20081010
  Serious: No
  Sender: FDA-Public Use
  Company Number: 1022556-2008-00542

PATIENT
  Sex: Male
  Weight: 113.3993 kg

DRUGS (1)
  1. CAPZASIN NO-MES LIQUID 1OZ [Suspect]
     Indication: ANALGESIA
     Dosage: 1X, TOPICAL
     Route: 061
     Dates: start: 20080423

REACTIONS (1)
  - CAUSTIC INJURY [None]
